FAERS Safety Report 9349723 (Version 2)
Quarter: 2013Q3

REPORT INFORMATION
  Report Type: Spontaneous
  Country: US (occurrence: US)
  Receive Date: 20130614
  Receipt Date: 20130701
  Transmission Date: 20140515
  Serious: Yes (Hospitalization)
  Sender: FDA-Public Use
  Company Number: US-US-EMD SERONO, INC.-7097616

PATIENT
  Sex: Female
  Weight: 88 kg

DRUGS (1)
  1. REBIF [Suspect]
     Indication: MULTIPLE SCLEROSIS
     Route: 058
     Dates: start: 20020808

REACTIONS (3)
  - Intervertebral disc protrusion [Recovering/Resolving]
  - Arthropod bite [Recovered/Resolved]
  - Fatigue [Not Recovered/Not Resolved]
